FAERS Safety Report 13627321 (Version 3)
Quarter: 2017Q3

REPORT INFORMATION
  Report Type: Spontaneous
  Country: US (occurrence: US)
  Receive Date: 20170607
  Receipt Date: 20170809
  Transmission Date: 20171127
  Serious: Yes (Other)
  Sender: FDA-Public Use
  Company Number: US-009507513-1706USA001431

PATIENT
  Age: 71 Year
  Sex: Male
  Weight: 116.1 kg

DRUGS (3)
  1. CYCLOPHOSPHAMIDE. [Suspect]
     Active Substance: CYCLOPHOSPHAMIDE
     Indication: PLASMA CELL MYELOMA
     Dosage: 50 MG, DAY 1, 15 EVERY 28 DAYS
     Route: 042
     Dates: start: 20161220
  2. DEXAMETHASONE. [Suspect]
     Active Substance: DEXAMETHASONE
     Dosage: 20 MG, DAYS 1-4, 15-18 EVERY 28 DAYS
     Route: 048
     Dates: start: 20161220
  3. KYPROLIS [Suspect]
     Active Substance: CARFILZOMIB
     Indication: PLASMA CELL MYELOMA
     Dosage: 20 MG/M2, DAYS 1, 2, 15+18 OF 28 DAYS
     Route: 042
     Dates: start: 20170131

REACTIONS (4)
  - Actinic keratosis [Not Recovered/Not Resolved]
  - Bowen^s disease [Not Recovered/Not Resolved]
  - Squamous cell carcinoma of skin [Unknown]
  - Bowen^s disease [Recovered/Resolved]

NARRATIVE: CASE EVENT DATE: 20170316
